FAERS Safety Report 7095776-1 (Version None)
Quarter: 2010Q4

REPORT INFORMATION
  Report Type: 
  Country: None (occurrence: None)
  Receive Date: 20101109
  Receipt Date: 20101109
  Transmission Date: 20110411
  Serious: No
  Sender: FDA-Public Use
  Company Number: None

PATIENT
  Age: 54 Year
  Sex: Male
  Weight: 92 kg

DRUGS (1)
  1. TRAZODONE HCL [Suspect]
     Dosage: 100 MG HS PO
     Route: 048
     Dates: start: 20100528, end: 20100528

REACTIONS (1)
  - PRIAPISM [None]
